FAERS Safety Report 8394395-4 (Version None)
Quarter: 2012Q2

REPORT INFORMATION
  Report Type: 
  Country: None (occurrence: None)
  Receive Date: 20120530
  Receipt Date: 20120522
  Transmission Date: 20120825
  Serious: Yes (Other)
  Sender: FDA-Public Use
  Company Number: PHHY2011DE43610

PATIENT
  Sex: Male

DRUGS (4)
  1. BETA BLOCKING AGENTS [Interacting]
     Dosage: UNK
     Dates: start: 20110401, end: 20110401
  2. GLEEVEC [Interacting]
     Dosage: 400 MG, PER DAY
     Route: 048
     Dates: start: 20080226
  3. STATIN [Interacting]
     Dosage: UNK
     Dates: start: 20090101
  4. GLEEVEC [Suspect]
     Dosage: 400 MG, PER DAY
     Route: 048
     Dates: start: 20070801, end: 20080212

REACTIONS (4)
  - MYALGIA [None]
  - ARTHRALGIA [None]
  - DRUG INTERACTION [None]
  - VENTRICULAR EXTRASYSTOLES [None]
